FAERS Safety Report 9727054 (Version 2)
Quarter: 2013Q4

REPORT INFORMATION
  Report Type: Spontaneous
  Country: AU (occurrence: AU)
  Receive Date: 20131203
  Receipt Date: 20131210
  Transmission Date: 20140711
  Serious: Yes (Death)
  Sender: FDA-Public Use
  Company Number: AU-PFIZER INC-2013342416

PATIENT
  Age: 74 Year
  Sex: 0

DRUGS (1)
  1. TORISEL [Suspect]
     Dosage: UNK

REACTIONS (1)
  - Death [Fatal]
